FAERS Safety Report 7776726-9 (Version None)
Quarter: 2011Q3

REPORT INFORMATION
  Report Type: 
  Country: None (occurrence: None)
  Receive Date: 20110926
  Receipt Date: 20110502
  Transmission Date: 20111222
  Serious: Yes (Hospitalization)
  Sender: FDA-Public Use
  Company Number: KR-BAYER-2011-012457

PATIENT
  Age: 48 Year
  Sex: Male
  Weight: 54.6 kg

DRUGS (107)
  1. MEK INHIBITOR (DIHYDROXYPROP-DIFLU-METHOXYPHEN-CYCLOPROPA-SULFAMI) [Suspect]
     Dosage: 50 MG, BID
     Dates: start: 20110215, end: 20110228
  2. SORAFENIB (RAF KINASE INHIBITOR) [Suspect]
     Dosage: 400 MG, QD
     Route: 048
     Dates: start: 20110420, end: 20110420
  3. BIPHENYL DICARBOXYLATE [Concomitant]
     Indication: HEPATITIS
     Dosage: 12.5 MG, TID
     Route: 048
     Dates: start: 20101214, end: 20110205
  4. SILYMARIN [Concomitant]
     Indication: DECREASED APPETITE
     Dosage: 500 ML, QOD
     Route: 042
     Dates: start: 20101212, end: 20110101
  5. MORPHINE SULFATE [Concomitant]
     Dosage: 5 ML, QD
     Route: 042
     Dates: start: 20110101, end: 20110102
  6. FREAMINE [Concomitant]
     Indication: DECREASED APPETITE
     Dosage: 500 ML, QOD
     Route: 042
     Dates: start: 20110103, end: 20110107
  7. LIPID EMULSION [Concomitant]
     Indication: DECREASED APPETITE
     Dosage: 500 ML, QOD
     Route: 042
     Dates: start: 20110104, end: 20110106
  8. ALDACTONE [Concomitant]
     Indication: OEDEMA
     Dosage: 1 DF, BID
     Route: 048
     Dates: start: 20110131, end: 20110205
  9. ALDACTONE [Concomitant]
     Dosage: 1 DF, BID
     Route: 048
     Dates: start: 20110207
  10. LASIX [Concomitant]
     Dosage: 1 ML, BID
     Dates: start: 20110503, end: 20110504
  11. METOCLOPRAMIDE HYDROCHLORIDE [Concomitant]
     Indication: VOMITING
     Dosage: 10 MG, QD
     Route: 042
     Dates: start: 20110409, end: 20110416
  12. XANAX [Concomitant]
     Indication: ANXIETY
     Dosage: 0.25 MG, QD
     Route: 048
     Dates: start: 20110427, end: 20110427
  13. REMICUT [Concomitant]
     Dosage: 1 MG, BID
     Dates: start: 20110504
  14. SORAFENIB (RAF KINASE INHIBITOR) [Suspect]
     Dosage: 400 MG, BID
     Route: 048
     Dates: start: 20110201, end: 20110204
  15. MEGESTROL ACETATE [Concomitant]
     Dosage: 20 ML, QD
     Route: 048
     Dates: start: 20110207
  16. LEGALON [Concomitant]
     Indication: HEPATITIS
     Dosage: 140 MG, TID
     Route: 048
     Dates: start: 20101214, end: 20110205
  17. LIVACT [AMINO ACIDS NOS] [Concomitant]
     Dosage: 4.15 G, TID
     Route: 048
     Dates: start: 20110207
  18. SILYMARIN [Concomitant]
     Dosage: 500 ML, QD
     Route: 042
     Dates: start: 20110102, end: 20110102
  19. HEPATAMINE [Concomitant]
     Indication: DECREASED APPETITE
     Dosage: 500 ML, QOD
     Route: 042
     Dates: start: 20101217, end: 20101231
  20. ZOLPIDEM [Concomitant]
     Indication: PROPHYLAXIS
     Dosage: 12.5 MG, QD
     Route: 048
     Dates: start: 20110124, end: 20110205
  21. LASIX [Concomitant]
     Indication: OEDEMA
     Dosage: 20 MG, BID
     Route: 048
     Dates: start: 20110131, end: 20110205
  22. LASIX [Concomitant]
     Dosage: 10 MG, BID
     Dates: start: 20110511, end: 20110511
  23. RED BLOOD CELLS [Concomitant]
     Indication: ANAEMIA
     Dosage: 400 ML, BID
     Route: 042
     Dates: start: 20110213, end: 20110213
  24. LACTITOL [Concomitant]
     Dosage: 20 G, BID
     Route: 048
     Dates: start: 20110429
  25. REMERON [Concomitant]
     Indication: ANXIETY
     Dosage: 7.5 MG, QD
     Route: 048
     Dates: start: 20110430, end: 20110430
  26. TORSEMIDE [Concomitant]
     Dosage: 5 MG, QD
     Dates: start: 20110511, end: 20110518
  27. SPANTOL [Concomitant]
     Dosage: 80 MG, TID
     Route: 048
     Dates: start: 20110518
  28. MEK INHIBITOR (DIHYDROXYPROP-DIFLU-METHOXYPHEN-CYCLOPROPA-SULFAMI) [Suspect]
     Indication: HEPATIC NEOPLASM MALIGNANT
     Dosage: 50 MG, BID
     Route: 048
     Dates: start: 20110110, end: 20110130
  29. MEK INHIBITOR (DIHYDROXYPROP-DIFLU-METHOXYPHEN-CYCLOPROPA-SULFAMI) [Suspect]
     Dosage: 30 MG, QD
     Route: 048
     Dates: start: 20110516, end: 20110516
  30. SORAFENIB (RAF KINASE INHIBITOR) [Suspect]
     Dosage: 400 MG, QD
     Route: 048
     Dates: start: 20110214, end: 20110214
  31. MEGESTROL ACETATE [Concomitant]
     Dosage: 20 ML, QD
     Route: 048
     Dates: start: 20110517
  32. HEPATAMINE [Concomitant]
     Dosage: 500 ML, QD
     Route: 042
     Dates: start: 20110207, end: 20110207
  33. SEROQUEL [Concomitant]
     Dosage: 50 MG, QD
     Route: 048
     Dates: start: 20110503
  34. TANTUM [Concomitant]
     Dosage: UNK UNK, PRN
     Dates: start: 20110424
  35. BARACLUDE [Concomitant]
     Indication: HEPATITIS B
     Dosage: 0.5 MG, QD
     Route: 048
     Dates: start: 20110427
  36. TRIAZOLAM [Concomitant]
     Indication: ANXIETY
     Dosage: 0.25 MG, QD
     Route: 048
     Dates: start: 20110502, end: 20110502
  37. BANAN [Concomitant]
     Dosage: 200 MG, BID
     Dates: start: 20110509
  38. AMPICILLIN SODIUM/SULBACTAM SODIUM [Concomitant]
     Indication: ACUTE SINUSITIS
     Dosage: 3 G, QID
     Route: 042
     Dates: start: 20110507, end: 20110508
  39. AMPICILLIN SODIUM/SULBACTAM SODIUM [Concomitant]
     Dosage: 3 G, QD
     Route: 048
     Dates: start: 20110509, end: 20110509
  40. KYTRIL [Concomitant]
     Indication: NAUSEA
     Dosage: 1 MG, QD
     Route: 048
     Dates: start: 20110517, end: 20110524
  41. SORAFENIB (RAF KINASE INHIBITOR) [Suspect]
     Dosage: 400 MG, QD
     Route: 048
     Dates: start: 20110301, end: 20110302
  42. SORAFENIB (RAF KINASE INHIBITOR) [Suspect]
     Dosage: 400 MG, BID
     Route: 048
     Dates: start: 20110303, end: 20110419
  43. MEGESTROL ACETATE [Concomitant]
     Indication: DECREASED APPETITE
     Dosage: 20 ML, QD
     Route: 048
     Dates: start: 20101219, end: 20110205
  44. DURAGESIC-100 [Concomitant]
     Dosage: 12.5 ?G, BIW
     Route: 062
     Dates: start: 20110124
  45. LEGALON [Concomitant]
     Dosage: 140 MG, TID
     Route: 048
     Dates: start: 20110207
  46. ACTIQ [Concomitant]
     Dosage: 0.8 MG, QID
     Route: 048
     Dates: start: 20110302
  47. CEFOTAXIME [Concomitant]
     Indication: PROPHYLAXIS
     Dosage: 2 G, TID
     Route: 042
     Dates: start: 20101216, end: 20110105
  48. ADALAT [Concomitant]
     Dosage: 30 MG, BID
     Route: 048
     Dates: start: 20110114, end: 20110205
  49. ADALAT [Concomitant]
     Dosage: 30 MG, BID
     Route: 048
     Dates: start: 20110207
  50. PANTOPRAZOLE SODIUM [Concomitant]
     Indication: GASTRIC ULCER
     Dosage: 20 MG, QD
     Route: 048
     Dates: start: 20110314
  51. RED BLOOD CELLS [Concomitant]
     Dosage: 400 ML, BID
     Route: 042
     Dates: start: 20110511, end: 20110511
  52. TRAMADOL [Concomitant]
     Indication: ABDOMINAL PAIN
     Dosage: 50 MG, QD
     Route: 042
     Dates: start: 20110405, end: 20110405
  53. Q-ROKEL [Concomitant]
     Indication: ANXIETY
     Dosage: 25 MG, QD
     Route: 048
     Dates: start: 20110425, end: 20110425
  54. BANAN [Concomitant]
     Indication: ACUTE SINUSITIS
     Dosage: 200 MG, QD
     Route: 048
     Dates: start: 20110503, end: 20110503
  55. NORVASC [Concomitant]
     Indication: PROPHYLAXIS
     Dosage: 5 MG, QD
     Route: 048
     Dates: start: 20110523
  56. MEK INHIBITOR (DIHYDROXYPROP-DIFLU-METHOXYPHEN-CYCLOPROPA-SULFAMI) [Suspect]
     Dosage: 50 MG, QD
     Route: 048
     Dates: start: 20110301, end: 20110302
  57. MUTERAN [Concomitant]
     Dosage: 200 MG, TID
     Route: 048
     Dates: start: 20110207, end: 20110313
  58. ACTIQ [Concomitant]
     Indication: ABDOMINAL PAIN
     Dosage: 0.6 MG, TID
     Route: 048
     Dates: start: 20101203, end: 20101222
  59. HEPATAMINE [Concomitant]
     Dosage: 500 ML, QD
     Route: 042
     Dates: start: 20110503, end: 20110503
  60. OXYCODONE HCL [Concomitant]
     Indication: ABDOMINAL PAIN
     Dosage: 10 MG, QD
     Route: 048
     Dates: start: 20101226, end: 20101226
  61. ULTRAVIST 150 [Concomitant]
     Dosage: 140 ML, QD
     Route: 042
     Dates: start: 20110511, end: 20110511
  62. ADALAT [Concomitant]
     Dosage: 30 MG, QD
     Dates: start: 20110522, end: 20110522
  63. ALDACTONE [Concomitant]
     Dosage: 50 MG, BID
     Dates: start: 20110511
  64. ALLEGRA [Concomitant]
     Indication: PRURITUS
     Dosage: 180 MG, QD
     Dates: start: 20110215, end: 20110313
  65. DESOWEN [Concomitant]
     Indication: PRURITUS
     Dosage: UNK UNK, PRN
     Route: 061
     Dates: start: 20110215, end: 20110424
  66. ERDOSTEINE [Concomitant]
     Dosage: 300 MG, TID
     Route: 048
     Dates: start: 20110520
  67. TORSEMIDE [Concomitant]
     Dosage: 10 MG, QD
     Dates: start: 20110511
  68. BANAN [Concomitant]
     Dosage: 200 MG, BID
     Dates: start: 20110504, end: 20110506
  69. MEK INHIBITOR (DIHYDROXYPROP-DIFLU-METHOXYPHEN-CYCLOPROPA-SULFAMI) [Suspect]
     Dosage: 30 MG, BID
     Route: 048
     Dates: start: 20110517
  70. SORAFENIB (RAF KINASE INHIBITOR) [Suspect]
     Dosage: 400 MG, QD
     Route: 048
     Dates: start: 20110516
  71. MUTERAN [Concomitant]
     Indication: PRODUCTIVE COUGH
     Dosage: 200 MG, TID
     Route: 048
     Dates: start: 20101214, end: 20110205
  72. MORPHINE SULFATE [Concomitant]
     Indication: ABDOMINAL PAIN
     Dosage: 5 ML, QD
     Route: 042
     Dates: start: 20101230, end: 20101230
  73. DIOVAN [Concomitant]
     Dosage: 40 MG, QD
     Route: 048
     Dates: start: 20110207
  74. POFOL [Concomitant]
     Indication: COMPUTERISED TOMOGRAM
     Dosage: 80 MG, QD
     Dates: start: 20110214, end: 20110214
  75. TRAMADOL [Concomitant]
     Dosage: 50 MG, TID
     Route: 042
     Dates: start: 20110406, end: 20110425
  76. SEROQUEL [Concomitant]
     Indication: ANXIETY
     Dosage: 50 MG, QD
     Route: 048
     Dates: start: 20110424, end: 20110424
  77. DEPAS [Concomitant]
     Indication: ANXIETY
     Dosage: 0.5 MG, QD
     Route: 048
     Dates: start: 20110507
  78. MEK INHIBITOR (DIHYDROXYPROP-DIFLU-METHOXYPHEN-CYCLOPROPA-SULFAMI) [Suspect]
     Dosage: 50 MG, QD
     Route: 048
     Dates: start: 20110214, end: 20110214
  79. SORAFENIB (RAF KINASE INHIBITOR) [Suspect]
     Indication: HEPATIC NEOPLASM MALIGNANT
     Dosage: 200/400 MG, QD
     Route: 048
     Dates: start: 20110110, end: 20110131
  80. SORAFENIB (RAF KINASE INHIBITOR) [Suspect]
     Dosage: 600 MG (200 MG/400 MG), QD
     Route: 048
     Dates: start: 20110205, end: 20110205
  81. SORAFENIB (RAF KINASE INHIBITOR) [Suspect]
     Dosage: 400 MG, BID
     Dates: start: 20110215, end: 20110228
  82. DURAGESIC-100 [Concomitant]
     Indication: ABDOMINAL PAIN
     Dosage: 25 ?G, BIW
     Route: 062
     Dates: start: 20101214, end: 20110101
  83. BIPHENYL DICARBOXYLATE [Concomitant]
     Dosage: 12.5 MG, TID
     Route: 048
     Dates: start: 20110207
  84. LIVACT [AMINO ACIDS NOS] [Concomitant]
     Indication: PROPHYLAXIS
     Dosage: 4.15 G, TID
     Route: 048
     Dates: start: 20101220, end: 20110205
  85. OXYCODONE HCL [Concomitant]
     Dosage: 10 MG, BID
     Route: 048
     Dates: start: 20101227
  86. ULTRAVIST 150 [Concomitant]
     Indication: COMPUTERISED TOMOGRAM
     Dosage: 140 ML, QD
     Route: 042
     Dates: start: 20110105, end: 20110105
  87. ADALAT [Concomitant]
     Indication: HYPERTENSION
     Dosage: 30 MG, QD
     Route: 048
     Dates: start: 20110113, end: 20110113
  88. ZOLPIDEM [Concomitant]
     Dosage: 12.5 MG, QD
     Route: 048
     Dates: start: 20110207
  89. UCERAX [Concomitant]
     Indication: PRURITUS
     Dosage: 25 MG, TID
     Dates: start: 20110201, end: 20110313
  90. ALBUMIN (HUMAN) [Concomitant]
     Indication: OEDEMA
     Dosage: 100 ML, QD
     Route: 042
     Dates: start: 20110209, end: 20110209
  91. ALBIS [Concomitant]
     Indication: HEPATITIS
     Dosage: 1 T, BID
     Route: 048
     Dates: start: 20110209, end: 20110209
  92. METOCLOPRAMIDE HYDROCHLORIDE [Concomitant]
     Dosage: 10 MG, TID
     Route: 042
     Dates: start: 20110425
  93. NASONEX [Concomitant]
     Indication: RHINITIS
     Dosage: UNK UNK, PRN
     Route: 045
  94. TORSEMIDE [Concomitant]
     Indication: OEDEMA
     Dosage: 5 MG, BID
     Route: 048
     Dates: start: 20110503, end: 20110510
  95. REMICUT [Concomitant]
     Indication: ACUTE SINUSITIS
     Dosage: 1 MG, QD
     Route: 048
     Dates: start: 20110503, end: 20110503
  96. K CONTIN [Concomitant]
     Indication: PROPHYLAXIS
     Dosage: 600 MG, TID
     Route: 048
     Dates: start: 20110504, end: 20110519
  97. MEK INHIBITOR (DIHYDROXYPROP-DIFLU-METHOXYPHEN-CYCLOPROPA-SULFAMI) [Suspect]
     Dosage: 50 MG, BID
     Route: 048
     Dates: start: 20110303, end: 20110419
  98. DURAGESIC-100 [Concomitant]
     Dosage: 25 ?G, BIW
     Route: 062
     Dates: start: 20110105, end: 20110123
  99. DURAGESIC-100 [Concomitant]
     Dosage: 25 ?G, Q72HR
     Dates: start: 20110514
  100. ACTIQ [Concomitant]
     Dosage: 0.8 MG, QID
     Route: 048
     Dates: start: 20101223
  101. DIOVAN [Concomitant]
     Indication: HYPERTENSION
     Dosage: 40 MG, QD
     Route: 048
     Dates: start: 20110113, end: 20110205
  102. LASIX [Concomitant]
     Dosage: 20 MG, BID
     Route: 048
     Dates: start: 20110207
  103. ALBUMIN (HUMAN) [Concomitant]
     Dosage: 100 ML, QD
     Route: 042
     Dates: start: 20110503, end: 20110504
  104. LACTITOL [Concomitant]
     Indication: CONSTIPATION
     Dosage: 20 G, QD
     Route: 048
     Dates: start: 20110428, end: 20110428
  105. ERDOSTEINE [Concomitant]
     Indication: PRODUCTIVE COUGH
     Dosage: 300 MG, QD
     Route: 048
     Dates: start: 20110428, end: 20110428
  106. ERDOSTEINE [Concomitant]
     Dosage: 300 MG, TID
     Route: 048
     Dates: start: 20110429
  107. SPANTOL [Concomitant]
     Indication: NAUSEA
     Dosage: 80 MG, QD
     Route: 048
     Dates: start: 20110517, end: 20110517

REACTIONS (2)
  - NEUROMYOPATHY [None]
  - DIARRHOEA [None]
